FAERS Safety Report 12662618 (Version 3)
Quarter: 2018Q1

REPORT INFORMATION
  Report Type: Report from Study
  Country: US (occurrence: US)
  Receive Date: 20160818
  Receipt Date: 20180308
  Transmission Date: 20180508
  Serious: Yes (Hospitalization)
  Sender: FDA-Public Use
  Company Number: US-ROCHE-1591070

PATIENT
  Age: 53 Year
  Sex: Male
  Weight: 93.2 kg

DRUGS (13)
  1. OXYCODONE [Concomitant]
     Active Substance: OXYCODONE
     Indication: ABDOMINAL PAIN
     Route: 065
     Dates: start: 200902
  2. OXYCODONE [Concomitant]
     Active Substance: OXYCODONE
     Indication: MUSCULOSKELETAL CHEST PAIN
  3. VENLAFAXINE [Concomitant]
     Active Substance: VENLAFAXINE HYDROCHLORIDE
     Indication: DEPRESSION
     Route: 065
     Dates: start: 201002
  4. NICORETTE [Concomitant]
     Active Substance: NICOTINE
     Indication: TOBACCO USER
     Route: 065
     Dates: start: 20150513
  5. IPILIMUMAB [Suspect]
     Active Substance: IPILIMUMAB
     Indication: NEOPLASM
     Dosage: INITIAL DOSE: IPILIMUMAB 1, OR 3 MG/KG IV, SINGLE DOSE, OR MULTIPLE-DOSE REGIMEN Q3W ?THE MOST RECEN
     Route: 042
     Dates: start: 20150422
  6. LEVOTHYROXINE SODIUM. [Concomitant]
     Active Substance: LEVOTHYROXINE SODIUM
     Indication: HYPOTHYROIDISM
     Route: 065
     Dates: start: 1984
  7. OXYCONTIN [Concomitant]
     Active Substance: OXYCODONE HYDROCHLORIDE
     Indication: ABDOMINAL PAIN
     Route: 065
     Dates: start: 2009
  8. OXYCONTIN [Concomitant]
     Active Substance: OXYCODONE HYDROCHLORIDE
     Indication: MUSCULOSKELETAL CHEST PAIN
  9. ATEZOLIZUMAB. [Suspect]
     Active Substance: ATEZOLIZUMAB
     Indication: NEOPLASM
     Dosage: MOST RECENT DOSE PRIOR TO EVENT ONSET WAS 1200 MG ON 13/MAY/2015 AT 10:39.
     Route: 042
     Dates: start: 20150422
  10. TAMULOSIN [Concomitant]
     Active Substance: TAMSULOSIN
     Indication: BENIGN PROSTATIC HYPERPLASIA
     Route: 065
     Dates: start: 201002
  11. ZOLPIDEM TARTRATE. [Concomitant]
     Active Substance: ZOLPIDEM TARTRATE
     Indication: DEPRESSION
     Route: 065
     Dates: start: 201102
  12. COLACE [Concomitant]
     Active Substance: DOCUSATE SODIUM
     Indication: CONSTIPATION
     Route: 065
     Dates: start: 2009
  13. CLONAZEPAM. [Concomitant]
     Active Substance: CLONAZEPAM
     Indication: ANXIETY
     Route: 065
     Dates: start: 201002

REACTIONS (1)
  - Diarrhoea [Recovered/Resolved]

NARRATIVE: CASE EVENT DATE: 20150601
